FAERS Safety Report 9407518 (Version 2)
Quarter: 2013Q3

REPORT INFORMATION
  Report Type: Report from Study
  Country: JP (occurrence: JP)
  Receive Date: 20130718
  Receipt Date: 20130822
  Transmission Date: 20140515
  Serious: Yes (Life-Threatening, Other)
  Sender: FDA-Public Use
  Company Number: JP-TEVA-320901ISR

PATIENT
  Age: 55 Year
  Sex: Male
  Weight: 66.9 kg

DRUGS (16)
  1. BENDAMUSTINE HCL [Suspect]
     Indication: MANTLE CELL LYMPHOMA
     Dosage: 90 MG/M2 DAILY;
     Route: 042
     Dates: start: 20110208, end: 20110209
  2. BENDAMUSTINE HCL [Suspect]
     Dosage: 90 MG/M2 DAILY;
     Route: 042
     Dates: start: 20110310, end: 20110311
  3. BENDAMUSTINE HCL [Suspect]
     Dosage: 90 MG/M2 DAILY;
     Route: 042
     Dates: start: 20110412, end: 20110413
  4. BENDAMUSTINE HCL [Suspect]
     Dosage: 90 MG/M2 DAILY;
     Route: 042
     Dates: start: 20110510, end: 20110511
  5. BENDAMUSTINE HCL [Suspect]
     Dosage: 90 MG/M2 DAILY;
     Route: 042
     Dates: start: 20110614, end: 20110615
  6. BENDAMUSTINE HCL [Suspect]
     Dosage: 90 MG/M2 DAILY;
     Route: 042
     Dates: start: 20110714, end: 20110715
  7. RITUXIMAB [Concomitant]
     Dates: start: 20110308, end: 20110322
  8. FLUCONAZOLE [Concomitant]
  9. SULFAMETHOXAZOLE W/TRIMETHOPRIM [Concomitant]
  10. VALACICLOVIR HYDROCHLORIDE [Concomitant]
     Dates: start: 20110208
  11. RABEPRAZOLE SODIUM [Concomitant]
  12. GRANISETRON HYDROCHLORIDE [Concomitant]
     Dates: start: 20110208, end: 20110715
  13. DEXAMETHASONE SODIUM PHOSPHATE [Concomitant]
     Dates: start: 20110208, end: 20110715
  14. ACETAMINOPHEN [Concomitant]
     Dates: start: 20110208, end: 20110525
  15. POLYETHYLENE GLYCOL [Concomitant]
     Dates: start: 20110413, end: 20110714
  16. FILGRASTIM [Concomitant]
     Indication: PROPHYLAXIS
     Dosage: 75 MICROGRAM DAILY;
     Dates: start: 20110516, end: 20110704

REACTIONS (4)
  - Lymphocyte count decreased [Recovering/Resolving]
  - Myelodysplastic syndrome [Recovering/Resolving]
  - Carcinoid tumour of the gastrointestinal tract [Not Recovered/Not Resolved]
  - Graft versus host disease [Unknown]
